FAERS Safety Report 6994241-7 (Version None)
Quarter: 2010Q3

REPORT INFORMATION
  Report Type: 
  Country: None (occurrence: None)
  Receive Date: 20100917
  Receipt Date: 20100513
  Transmission Date: 20110219
  Serious: Yes (Other)
  Sender: FDA-Public Use
  Company Number: US-ASTRAZENECA-2009UW20605

PATIENT
  Sex: Male

DRUGS (5)
  1. SEROQUEL [Suspect]
     Dosage: 200MG-400MG AT NIGHT
     Route: 048
     Dates: start: 20060509
  2. CLONIDINE [Concomitant]
     Dates: start: 20060509
  3. ELAVIL [Concomitant]
     Dates: start: 20060509
  4. TEGRETOL [Concomitant]
     Dates: start: 20060509
  5. WELLBUTRIN [Concomitant]
     Dates: start: 20060509

REACTIONS (3)
  - DIABETES MELLITUS [None]
  - KETOACIDOSIS [None]
  - PANCREATITIS [None]
